FAERS Safety Report 6814202-8 (Version None)
Quarter: 2010Q2

REPORT INFORMATION
  Report Type: 
  Country: None (occurrence: None)
  Receive Date: 20100529
  Receipt Date: 20100614
  Transmission Date: 20101027
  Serious: Yes (Other)
  Sender: FDA-Public Use
  Company Number: JPI-P-011049

PATIENT
  Age: 59 Year
  Sex: Female
  Weight: 57.1532 kg

DRUGS (5)
  1. XYREM [Suspect]
     Indication: CATAPLEXY
     Dosage: 4.5 GM (2.25 GM, 2 IN 1 D), ORAL
     Route: 048
     Dates: start: 20100611, end: 20100611
  2. ARMODAFINIL [Concomitant]
  3. LAMOTRIGINE [Concomitant]
  4. SUMATRIPTAN SUCCINATE [Concomitant]
  5. ACETYLSALICYLIC ACID [Concomitant]

REACTIONS (6)
  - APHONIA [None]
  - CRYING [None]
  - DYSPNOEA [None]
  - EMOTIONAL DISORDER [None]
  - LOSS OF CONSCIOUSNESS [None]
  - THROAT TIGHTNESS [None]
